FAERS Safety Report 17448272 (Version 1)
Quarter: 2020Q1

REPORT INFORMATION
  Report Type: Spontaneous
  Country: SE (occurrence: SE)
  Receive Date: 20200223
  Receipt Date: 20200223
  Transmission Date: 20200409
  Serious: Yes (Hospitalization)
  Sender: FDA-Public Use
  Company Number: NVSC2020SE044948

PATIENT
  Age: 41 Year
  Sex: Female

DRUGS (9)
  1. PREGABALIN. [Suspect]
     Active Substance: PREGABALIN
     Indication: PRODUCT USED FOR UNKNOWN INDICATION
     Dosage: UNK (6 TABL)
     Route: 048
     Dates: start: 20181026, end: 20181026
  2. OLANZAPINE. [Suspect]
     Active Substance: OLANZAPINE
     Indication: PRODUCT USED FOR UNKNOWN INDICATION
     Dosage: 45 MG (3 TABL)
     Route: 048
     Dates: start: 20181026, end: 20181026
  3. PREGABALIN. [Suspect]
     Active Substance: PREGABALIN
     Dosage: 900 MG (6 TAB)
     Route: 048
     Dates: start: 20181026, end: 20181026
  4. PROPAVAN [Suspect]
     Active Substance: PROPIOMAZINE
     Indication: PRODUCT USED FOR UNKNOWN INDICATION
     Dosage: UNK (20 TABLETTER)
     Route: 048
     Dates: start: 20181026, end: 20181026
  5. LAMICTAL [Suspect]
     Active Substance: LAMOTRIGINE
     Indication: PRODUCT USED FOR UNKNOWN INDICATION
     Dosage: 600 MG (6 ST)
     Route: 048
     Dates: start: 20181026, end: 20181026
  6. STESOLID [Suspect]
     Active Substance: DIAZEPAM
     Indication: PRODUCT USED FOR UNKNOWN INDICATION
     Dosage: 30 MG (3 TABL)
     Route: 048
     Dates: start: 20181026, end: 20181026
  7. NALTREXONE [Suspect]
     Active Substance: NALTREXONE
     Indication: PRODUCT USED FOR UNKNOWN INDICATION
     Dosage: 150 MG (3 TABL)
     Route: 048
     Dates: start: 20181026, end: 20181026
  8. ZOPICLONE [Suspect]
     Active Substance: ZOPICLONE
     Indication: PRODUCT USED FOR UNKNOWN INDICATION
     Dosage: 22.5 MG (3 TABL)
     Route: 048
     Dates: start: 20181026, end: 20181026
  9. CISORDINOL [Suspect]
     Active Substance: ZUCLOPENTHIXOL
     Indication: PRODUCT USED FOR UNKNOWN INDICATION
     Dosage: 30 MG (3 TABL)
     Route: 048
     Dates: start: 20181026, end: 20181026

REACTIONS (3)
  - Depressed level of consciousness [Unknown]
  - Intentional overdose [Unknown]
  - Intentional self-injury [Unknown]

NARRATIVE: CASE EVENT DATE: 20181026
